FAERS Safety Report 12118237 (Version 1)
Quarter: 2016Q1

REPORT INFORMATION
  Report Type: Spontaneous
  Country: GB (occurrence: GB)
  Receive Date: 20160226
  Receipt Date: 20160226
  Transmission Date: 20160526
  Serious: Yes (Other)
  Sender: FDA-Public Use
  Company Number: GB-TEVA-636306ACC

PATIENT

DRUGS (2)
  1. AZITHROMYCIN ANHYDROUS. [Suspect]
     Active Substance: AZITHROMYCIN ANHYDROUS
     Indication: LUNG INFECTION
     Dosage: UNK
     Route: 048
  2. FLUCLOXACILLIN [Suspect]
     Active Substance: FLUCLOXACILLIN
     Indication: STAPHYLOCOCCAL INFECTION
     Dosage: UNK

REACTIONS (9)
  - Emotional distress [Recovered/Resolved]
  - Paraesthesia [Recovered/Resolved]
  - Seizure [Unknown]
  - Diarrhoea [Unknown]
  - Nervous system disorder [Unknown]
  - Staphylococcal infection [Unknown]
  - Eye irritation [Recovered/Resolved]
  - Pain [Recovered/Resolved]
  - Abdominal pain upper [Recovered/Resolved]

NARRATIVE: CASE EVENT DATE: 201510
